FAERS Safety Report 5331539-2 (Version None)
Quarter: 2007Q2

REPORT INFORMATION
  Report Type: 
  Country: None (occurrence: None)
  Receive Date: 20070522
  Receipt Date: 20070509
  Transmission Date: 20071010
  Serious: Yes (Other)
  Sender: FDA-Public Use
  Company Number: GB-ELI_LILLY_AND_COMPANY-GB200705002755

PATIENT
  Age: 11 Year
  Weight: 66 kg

DRUGS (2)
  1. ATOMOXETINE HYDROCHLORIDE [Suspect]
     Indication: ATTENTION DEFICIT/HYPERACTIVITY DISORDER
     Dosage: 80 MG, DAILY (1/D)
     Route: 048
     Dates: start: 20070117, end: 20070320
  2. CONCERTA [Concomitant]
     Indication: ATTENTION DEFICIT/HYPERACTIVITY DISORDER
     Dosage: 36 MG, UNK
     Route: 048
     Dates: start: 20041101, end: 20070201

REACTIONS (5)
  - ANGER [None]
  - DEPRESSED MOOD [None]
  - INTENTIONAL SELF-INJURY [None]
  - PERSONALITY CHANGE [None]
  - SUICIDAL IDEATION [None]
